FAERS Safety Report 22046274 (Version 1)
Quarter: 2023Q1

REPORT INFORMATION
  Report Type: Spontaneous
  Country: ES (occurrence: ES)
  Receive Date: 20230228
  Receipt Date: 20230228
  Transmission Date: 20230418
  Serious: Yes (Other)
  Sender: FDA-Public Use
  Company Number: ES-JNJFOC-20230224995

PATIENT
  Sex: Male
  Weight: 100 kg

DRUGS (27)
  1. DEXAMETHASONE [Suspect]
     Active Substance: DEXAMETHASONE
     Indication: Plasma cell myeloma
     Dosage: 3 CYCLES
     Route: 065
  2. DEXAMETHASONE [Suspect]
     Active Substance: DEXAMETHASONE
     Route: 065
  3. DEXAMETHASONE [Suspect]
     Active Substance: DEXAMETHASONE
     Dosage: 8 CYCLES
     Route: 065
  4. DEXAMETHASONE [Suspect]
     Active Substance: DEXAMETHASONE
     Dosage: AS A PART OF EC APL-B022-15
     Route: 065
     Dates: start: 201801
  5. DEXAMETHASONE [Suspect]
     Active Substance: DEXAMETHASONE
     Dosage: AS APART OF CARTBCMA-HCB-01
     Route: 065
     Dates: start: 202001
  6. DEXAMETHASONE [Suspect]
     Active Substance: DEXAMETHASONE
     Route: 065
     Dates: start: 201701
  7. DEXAMETHASONE [Suspect]
     Active Substance: DEXAMETHASONE
     Dosage: AS A PART OF RD
     Route: 065
     Dates: start: 201604, end: 201611
  8. CYCLOPHOSPHAMIDE [Suspect]
     Active Substance: CYCLOPHOSPHAMIDE
     Indication: Plasma cell myeloma
     Dosage: LOADING DOSE REGIMEN
     Route: 065
     Dates: start: 202011
  9. CYCLOPHOSPHAMIDE [Suspect]
     Active Substance: CYCLOPHOSPHAMIDE
     Route: 065
     Dates: start: 201701
  10. CYCLOPHOSPHAMIDE [Suspect]
     Active Substance: CYCLOPHOSPHAMIDE
     Dosage: LOADING DOSE REGIMEN
     Route: 065
     Dates: start: 202012
  11. SELINEXOR [Suspect]
     Active Substance: SELINEXOR
     Indication: Plasma cell myeloma
     Dosage: AS A PART OF EC GEM SELIBORDARA
     Route: 065
     Dates: start: 201811
  12. DARZALEX [Suspect]
     Active Substance: DARATUMUMAB
     Indication: Plasma cell myeloma
     Dosage: AS A PART OF EC GEM SELIBORDARA
     Route: 065
     Dates: start: 201811
  13. CARFILZOMIB [Suspect]
     Active Substance: CARFILZOMIB
     Indication: Plasma cell myeloma
     Dosage: AS APART OF CARTBCMA-HCB-01
     Route: 065
     Dates: start: 202001
  14. VELCADE [Suspect]
     Active Substance: BORTEZOMIB
     Indication: Plasma cell myeloma
     Dosage: AS A PART OF ECAPL-B022-15
     Route: 065
     Dates: start: 201801
  15. VELCADE [Suspect]
     Active Substance: BORTEZOMIB
     Dosage: EC GEM SELIBORDARA
     Route: 065
     Dates: start: 201811
  16. VELCADE [Suspect]
     Active Substance: BORTEZOMIB
     Dosage: 8 CYCLES
     Route: 065
  17. VINCRISTINE [Suspect]
     Active Substance: VINCRISTINE
     Indication: Plasma cell myeloma
     Dosage: 3 CYCLES
     Route: 065
  18. FLUDARABINE [Suspect]
     Active Substance: FLUDARABINE PHOSPHATE
     Indication: Plasma cell myeloma
     Route: 065
     Dates: start: 202012
  19. FLUDARABINE [Suspect]
     Active Substance: FLUDARABINE PHOSPHATE
     Dosage: LOADING DOSE REGIMEN
     Route: 065
     Dates: start: 202011
  20. POMALIDOMIDE [Suspect]
     Active Substance: POMALIDOMIDE
     Indication: Plasma cell myeloma
     Route: 065
     Dates: start: 201701
  21. DOXORUBICIN HYDROCHLORIDE [Suspect]
     Active Substance: DOXORUBICIN HYDROCHLORIDE
     Indication: Plasma cell myeloma
     Dosage: 3 CYCLES
     Route: 065
  22. REVLIMID [Suspect]
     Active Substance: LENALIDOMIDE
     Indication: Plasma cell myeloma
     Dosage: AS A PART OF RD
     Route: 065
     Dates: start: 201604, end: 201611
  23. LORAZEPAM [Concomitant]
     Active Substance: LORAZEPAM
     Indication: Product used for unknown indication
  24. MAGNOGENE [MAGNESIUM CHLORIDE] [Concomitant]
     Indication: Product used for unknown indication
  25. LOSARTAN [Concomitant]
     Active Substance: LOSARTAN
     Indication: Product used for unknown indication
  26. BISOPROLOL [Concomitant]
     Active Substance: BISOPROLOL
     Indication: Product used for unknown indication
  27. CALCIFEDIOL [Concomitant]
     Active Substance: CALCIFEDIOL
     Indication: Product used for unknown indication

REACTIONS (3)
  - Plasma cell myeloma [Unknown]
  - Plasma cell myeloma refractory [Unknown]
  - Intentional product use issue [Unknown]
